FAERS Safety Report 5870457-8 (Version None)
Quarter: 2008Q3

REPORT INFORMATION
  Report Type: 
  Country: None (occurrence: None)
  Receive Date: 20080904
  Receipt Date: 20070927
  Transmission Date: 20090109
  Serious: No
  Sender: FDA-Public Use
  Company Number: US-BRISTOL-MYERS SQUIBB COMPANY-13921697

PATIENT
  Age: 60 Year
  Sex: Female
  Weight: 91 kg

DRUGS (12)
  1. DEFINITY [Suspect]
     Indication: ULTRASOUND SCAN
     Dates: start: 20070925, end: 20070925
  2. FLUCONAZOLE [Concomitant]
  3. DETROL [Concomitant]
  4. ALPRAZOLAM (GEN) [Concomitant]
  5. DEPAKOTE [Concomitant]
  6. COLACE [Concomitant]
  7. PRILOSEC [Concomitant]
  8. ESTROGENIC SUBSTANCE [Concomitant]
  9. ROBAXIN [Concomitant]
  10. ALBUTEROL [Concomitant]
  11. ZOLOFT [Concomitant]
  12. TRAZODONE HCL [Concomitant]

REACTIONS (1)
  - MUSCULOSKELETAL PAIN [None]
